FAERS Safety Report 15894642 (Version 3)
Quarter: 2019Q1

REPORT INFORMATION
  Report Type: Spontaneous
  Country: US (occurrence: US)
  Receive Date: 20190131
  Receipt Date: 20190305
  Transmission Date: 20190417
  Serious: No
  Sender: FDA-Public Use
  Company Number: US-PFIZER INC-2019044538

PATIENT
  Age: 48 Year
  Sex: Female

DRUGS (1)
  1. METHOTREXATE SODIUM. [Suspect]
     Active Substance: METHOTREXATE SODIUM
     Dosage: 0.8 ML, UNK
     Route: 058

REACTIONS (4)
  - Product use issue [Unknown]
  - Tuberculin test positive [Recovered/Resolved]
  - Gastrointestinal pain [Not Recovered/Not Resolved]
  - Nausea [Not Recovered/Not Resolved]
